FAERS Safety Report 8968257 (Version 1)
Quarter: 2012Q4

REPORT INFORMATION
  Report Type: 
  Country: PL (occurrence: PL)
  Receive Date: 20121217
  Receipt Date: 20121217
  Transmission Date: 20130627
  Serious: Yes (Hospitalization)
  Sender: FDA-Public Use
  Company Number: PHHY2012PL112930

PATIENT
  Age: 53 Year
  Sex: Female

DRUGS (13)
  1. SIMULECT [Suspect]
     Indication: RENAL TRANSPLANT
     Dosage: 20 mg, BID
     Route: 042
  2. MYFORTIC [Concomitant]
     Dosage: 720 mg, BID
  3. ADVAGRAF [Concomitant]
     Dosage: 14 mg, QD
  4. CELLCEPT [Concomitant]
     Indication: IMMUNOSUPPRESSION
     Dosage: 1 g, BID
  5. ENCORTON [Concomitant]
     Indication: IMMUNOSUPPRESSION
     Dosage: 30 mg, QD
  6. BISEPTOL [Concomitant]
     Dosage: 480 mg, BID
  7. RANIGAST [Concomitant]
     Dosage: 150 mg, QD
  8. HEVIRAN [Concomitant]
     Dosage: 400 mg, BID
  9. FUROSEMIDE [Concomitant]
     Dosage: 40 mg, QD
  10. METOCARD [Concomitant]
     Dosage: 25 mg, BID
  11. AMLOZEK [Concomitant]
     Dosage: 5 mg, QD
  12. MIXTARD [Concomitant]
     Dosage: 30 B 22 U, S 10 U
  13. PROGRAF [Concomitant]

REACTIONS (5)
  - Complications of transplanted kidney [Unknown]
  - Kidney transplant rejection [Unknown]
  - Blood creatinine increased [Unknown]
  - Glomerular filtration rate decreased [Unknown]
  - Irritable bowel syndrome [Unknown]
